FAERS Safety Report 7416601-2 (Version None)
Quarter: 2011Q2

REPORT INFORMATION
  Report Type: 
  Country: None (occurrence: None)
  Receive Date: 20110415
  Receipt Date: 20110407
  Transmission Date: 20111010
  Serious: Yes (Hospitalization)
  Sender: FDA-Public Use
  Company Number: US-BIOGENIDEC-2009BI027703

PATIENT
  Age: 65 Year
  Sex: Female

DRUGS (1)
  1. AVONEX [Suspect]
     Indication: MULTIPLE SCLEROSIS
     Route: 030
     Dates: start: 20001216

REACTIONS (4)
  - COLON CANCER METASTATIC [None]
  - HEPATIC NEOPLASM MALIGNANT [None]
  - METASTASES TO PERITONEUM [None]
  - NEOPLASM MALIGNANT [None]
